FAERS Safety Report 4801368-4 (Version None)
Quarter: 2005Q4

REPORT INFORMATION
  Report Type: 
  Country: None (occurrence: None)
  Receive Date: 20051012
  Receipt Date: 20050929
  Transmission Date: 20060501
  Serious: Yes (Other)
  Sender: FDA-Public Use
  Company Number: 2005-10-0227

PATIENT
  Age: 70 Year
  Sex: Male

DRUGS (1)
  1. EULEXIN [Suspect]
     Dosage: 750 MG QD ORAL
     Route: 048

REACTIONS (4)
  - BRONCHOALVEOLAR LAVAGE ABNORMAL [None]
  - HYPOXIA [None]
  - LUNG DISORDER [None]
  - LUNG INFILTRATION [None]
